FAERS Safety Report 20980350 (Version 1)
Quarter: 2022Q2

REPORT INFORMATION
  Report Type: Spontaneous
  Country: US (occurrence: US)
  Receive Date: 20220620
  Receipt Date: 20220620
  Transmission Date: 20220721
  Serious: No
  Sender: FDA-Public Use
  Company Number: US-AUROBINDO-AUR-APL-2022-006628

PATIENT
  Age: 85 Year
  Sex: Male
  Weight: 65 kg

DRUGS (1)
  1. CIPROFLOXACIN [Suspect]
     Active Substance: CIPROFLOXACIN
     Indication: Infection
     Dosage: 1 DOSAGE FORM, TWO TIMES A DAY
     Route: 048

REACTIONS (4)
  - Illness [Unknown]
  - Feeling abnormal [Unknown]
  - Eating disorder [Unknown]
  - Abdominal discomfort [Unknown]
